FAERS Safety Report 13558540 (Version 2)
Quarter: 2017Q2

REPORT INFORMATION
  Report Type: Spontaneous
  Country: US (occurrence: US)
  Receive Date: 20170518
  Receipt Date: 20170604
  Transmission Date: 20170830
  Serious: No
  Sender: FDA-Public Use
  Company Number: US-009507513-1705USA008240

PATIENT
  Age: 30 Year
  Sex: Female

DRUGS (22)
  1. PROPOFOL. [Concomitant]
     Active Substance: PROPOFOL
     Dosage: 50 MG, UNK; DURING 5TH ECT TREATMENT
  2. ONDANSETRON [Concomitant]
     Active Substance: ONDANSETRON
     Dosage: 4 MG, UNK; DURING 2ND ECT TREATMENT
  3. METHOHEXITAL [Concomitant]
     Active Substance: METHOHEXITAL
     Dosage: 70 MG, UNK; DURING 2ND ECT TREATMENT
  4. METHOHEXITAL [Concomitant]
     Active Substance: METHOHEXITAL
     Dosage: 70 MG, UNK; DURING 4TH ECT TREATMENT
  5. PROPOFOL. [Concomitant]
     Active Substance: PROPOFOL
     Indication: ANAESTHESIA
     Dosage: 80 MG, UNK; DURING 1ST ECT TREATMENT
  6. LIDOCAINE. [Suspect]
     Active Substance: LIDOCAINE
     Dosage: 60 MG, UNK; DURING 2ND ECT TREATMENT
  7. PEPCID [Suspect]
     Active Substance: FAMOTIDINE
     Indication: ANAESTHESIA
     Dosage: 20 MG, UNK^ DURING 2ND ECT TREATMENT
  8. ONDANSETRON [Concomitant]
     Active Substance: ONDANSETRON
     Indication: ANAESTHESIA
     Dosage: 4 MG, UNK; DURING 3RD ECT TREATMENT
  9. SUCCINYLCHOLINE CHLORIDE. [Concomitant]
     Active Substance: SUCCINYLCHOLINE CHLORIDE
     Dosage: 90 MG, UNK; DURING 2ND ECT TREATMENT
  10. PROPOFOL. [Concomitant]
     Active Substance: PROPOFOL
     Dosage: 50 MG, UNK; DURING 2ND ECT TREATMENT
  11. ONDANSETRON [Concomitant]
     Active Substance: ONDANSETRON
     Dosage: 4 MG, UNK; DURING 4TH ECT TREATMENT
  12. SUCCINYLCHOLINE CHLORIDE. [Concomitant]
     Active Substance: SUCCINYLCHOLINE CHLORIDE
     Dosage: 90 MG, UNK; DURING 3RD ECT TREATMENT
  13. SUCCINYLCHOLINE CHLORIDE. [Concomitant]
     Active Substance: SUCCINYLCHOLINE CHLORIDE
     Dosage: 100 MG, UNK; DURING 5TH ECT TREATMENT
  14. METHOHEXITAL [Concomitant]
     Active Substance: METHOHEXITAL
     Indication: INDUCTION OF ANAESTHESIA
     Dosage: 70 MG, UNK; DURING 1ST ECT TREATMENT
  15. PROPOFOL. [Concomitant]
     Active Substance: PROPOFOL
     Dosage: 50 MG, UNK; DURING 4TH ECT TREATMENT
  16. ONDANSETRON [Concomitant]
     Active Substance: ONDANSETRON
     Dosage: 4 MG, UNK; DURING 5TH ECT TREATMENT
  17. SUCCINYLCHOLINE CHLORIDE. [Concomitant]
     Active Substance: SUCCINYLCHOLINE CHLORIDE
     Indication: ANAESTHESIA
     Dosage: 90 MG, UNK; DURING 1ST ECT TREATMENT
  18. SUCCINYLCHOLINE CHLORIDE. [Concomitant]
     Active Substance: SUCCINYLCHOLINE CHLORIDE
     Dosage: 100 MG, UNK; DURING 4TH ECT TREATMENT
  19. METHOHEXITAL [Concomitant]
     Active Substance: METHOHEXITAL
     Dosage: 70 MG, UNK; DURING 3RD ECT TREATMENT
  20. LIDOCAINE. [Suspect]
     Active Substance: LIDOCAINE
     Indication: ANAESTHESIA
     Dosage: 20 MG, UNK; DURING 1ST ECT TREATMENT
  21. METHOHEXITAL [Concomitant]
     Active Substance: METHOHEXITAL
     Dosage: 70 MG, UNK; DURING 5TH ECT TREATMENT
  22. PROPOFOL. [Concomitant]
     Active Substance: PROPOFOL
     Dosage: 50 MG, UNK; DURING 3RD ECT TREATMENT

REACTIONS (1)
  - Exposure during pregnancy [Unknown]
